FAERS Safety Report 22116459 (Version 1)
Quarter: 2023Q1

REPORT INFORMATION
  Report Type: Spontaneous
  Country: US (occurrence: US)
  Receive Date: 20230320
  Receipt Date: 20230320
  Transmission Date: 20230418
  Serious: Yes (Other)
  Sender: FDA-Public Use
  Company Number: US-ELI_LILLY_AND_COMPANY-US202303005199

PATIENT
  Sex: Female

DRUGS (6)
  1. HUMALOG [Suspect]
     Active Substance: INSULIN LISPRO
     Indication: Type 2 diabetes mellitus
     Dosage: 8 U, TID (7-8 UNITS)
     Route: 058
     Dates: start: 202103
  2. HUMALOG [Suspect]
     Active Substance: INSULIN LISPRO
     Indication: Type 2 diabetes mellitus
     Dosage: 8 U, TID (7-8 UNITS)
     Route: 058
     Dates: start: 202103
  3. HUMALOG [Suspect]
     Active Substance: INSULIN LISPRO
     Dosage: 8 U, TID (7-8 UNITS)
     Route: 058
     Dates: start: 202103
  4. HUMALOG [Suspect]
     Active Substance: INSULIN LISPRO
     Dosage: 8 U, TID (7-8 UNITS)
     Route: 058
     Dates: start: 202103
  5. LANTUS [Concomitant]
     Active Substance: INSULIN GLARGINE
     Indication: Type 2 diabetes mellitus
     Dosage: 15 U, DAILY (ON DIALYSIS DAYS)
  6. LANTUS [Concomitant]
     Active Substance: INSULIN GLARGINE
     Dosage: 20 U, DAILY (ON NO DIALYSIS DAYS)

REACTIONS (3)
  - Cerebrovascular accident [Unknown]
  - Appetite disorder [Unknown]
  - Incorrect dose administered [Unknown]
